FAERS Safety Report 4817680-9 (Version None)
Quarter: 2005Q3

REPORT INFORMATION
  Report Type: 
  Country: None (occurrence: None)
  Receive Date: 20050929
  Receipt Date: 20050801
  Transmission Date: 20060218
  Serious: No
  Sender: FDA-Public Use
  Company Number: 05P-163-0307175-00

PATIENT
  Age: 68 Year
  Sex: Female
  Weight: 104.5 kg

DRUGS (7)
  1. HUMIRA [Suspect]
     Indication: RHEUMATOID ARTHRITIS
     Dosage: 40 MG, 1 IN 2 WK, SUBCUTANEOUS
     Route: 058
     Dates: start: 20041201
  2. PREDNISONE [Concomitant]
  3. ISONIAZID [Concomitant]
  4. ENALAPRIL MALEATE [Concomitant]
  5. PYRIDOXINE HYDROCHLORIDE [Concomitant]
  6. CALCIUM WITH VITAMIN D [Concomitant]
  7. RANITIDINE HYDROCHLORIDE [Concomitant]

REACTIONS (4)
  - INJECTION SITE SWELLING [None]
  - INJECTION SITE URTICARIA [None]
  - PRURITUS [None]
  - RASH [None]
